FAERS Safety Report 5479639-0 (Version None)
Quarter: 2007Q4

REPORT INFORMATION
  Report Type: 
  Country: None (occurrence: None)
  Receive Date: 20071008
  Receipt Date: 20071003
  Transmission Date: 20080405
  Serious: Yes (Hospitalization)
  Sender: FDA-Public Use
  Company Number: A0685915A

PATIENT
  Age: 83 Year
  Sex: Female

DRUGS (13)
  1. ADVAIR DISKUS 100/50 [Suspect]
     Indication: ASTHMA
     Dosage: 1PUFF TWICE PER DAY
     Route: 055
     Dates: start: 20060101
  2. SPIRIVA [Concomitant]
  3. DIOVAN [Concomitant]
  4. LASIX [Concomitant]
  5. POTASSIUM CHLORIDE [Concomitant]
  6. LEXAPRO [Concomitant]
  7. FOLIC ACID [Concomitant]
  8. IRON [Concomitant]
  9. INDERAL [Concomitant]
  10. SINGULAIR [Concomitant]
  11. ZOCOR [Concomitant]
  12. PRIMIDONE [Concomitant]
  13. XALATAN [Concomitant]

REACTIONS (2)
  - APHONIA [None]
  - ROAD TRAFFIC ACCIDENT [None]
